FAERS Safety Report 9438219 (Version 1)
Quarter: 2013Q3

REPORT INFORMATION
  Report Type: Spontaneous
  Country: US (occurrence: US)
  Receive Date: 20130802
  Receipt Date: 20130802
  Transmission Date: 20140515
  Serious: Yes (Other)
  Sender: FDA-Public Use
  Company Number: US-BRISTOL-MYERS SQUIBB COMPANY-17385436

PATIENT
  Sex: Male

DRUGS (2)
  1. COUMADIN [Suspect]
     Dates: end: 20130116
  2. XARELTO [Concomitant]
     Dosage: TABS
     Route: 048
     Dates: start: 20130118

REACTIONS (1)
  - Haematuria [Not Recovered/Not Resolved]
